FAERS Safety Report 21156905 (Version 14)
Quarter: 2024Q2

REPORT INFORMATION
  Report Type: Report from Study
  Country: US (occurrence: US)
  Receive Date: 20220801
  Receipt Date: 20240424
  Transmission Date: 20240716
  Serious: Yes (Other)
  Sender: FDA-Public Use
  Company Number: US-NOVARTISTESTPH-NVSC2022US173254

PATIENT
  Sex: Male

DRUGS (1)
  1. KESIMPTA [Suspect]
     Active Substance: OFATUMUMAB
     Indication: Multiple sclerosis
     Dosage: 20 MG, QMO
     Route: 058
     Dates: start: 20220623

REACTIONS (19)
  - Cataract [Unknown]
  - Influenza like illness [Recovered/Resolved]
  - Arthralgia [Unknown]
  - Feeling of body temperature change [Unknown]
  - Anal incontinence [Recovering/Resolving]
  - Oropharyngeal pain [Recovering/Resolving]
  - Muscle spasms [Not Recovered/Not Resolved]
  - Fall [Recovering/Resolving]
  - Dysstasia [Not Recovered/Not Resolved]
  - Hypoaesthesia [Not Recovered/Not Resolved]
  - Tenderness [Recovering/Resolving]
  - Oedema peripheral [Recovering/Resolving]
  - Erythema [Recovering/Resolving]
  - Muscle discomfort [Not Recovered/Not Resolved]
  - Injection site pain [Recovered/Resolved]
  - Inappropriate schedule of product administration [Not Recovered/Not Resolved]
  - Gait inability [Unknown]
  - Back pain [Unknown]
  - Diarrhoea [Unknown]

NARRATIVE: CASE EVENT DATE: 20220101
